FAERS Safety Report 7804706-3 (Version None)
Quarter: 2011Q4

REPORT INFORMATION
  Report Type: 
  Country: None (occurrence: None)
  Receive Date: 20111010
  Receipt Date: 20111003
  Transmission Date: 20120403
  Serious: Yes (Hospitalization, Other)
  Sender: FDA-Public Use
  Company Number: US-AMGEN-USASP2011051046

PATIENT
  Age: 61 Year
  Sex: Female

DRUGS (2)
  1. ENBREL [Suspect]
     Indication: PSORIASIS
  2. ENBREL [Suspect]
     Indication: RHEUMATOID ARTHRITIS
     Dosage: 50 MG, QWK
     Dates: start: 20020101

REACTIONS (15)
  - SURGERY [None]
  - AORTIC DISORDER [None]
  - PNEUMONIA [None]
  - OEDEMA PERIPHERAL [None]
  - DYSMENORRHOEA [None]
  - DERMATITIS PSORIASIFORM [None]
  - FAILURE TO THRIVE [None]
  - BLOOD COUNT ABNORMAL [None]
  - MUSCLE SPASMS [None]
  - INTERVERTEBRAL DISC DISORDER [None]
  - BODY TEMPERATURE DECREASED [None]
  - HEADACHE [None]
  - PAIN [None]
  - DRY EYE [None]
  - AGEUSIA [None]
